FAERS Safety Report 5819093-X (Version None)
Quarter: 2008Q3

REPORT INFORMATION
  Report Type: 
  Country: None (occurrence: None)
  Receive Date: 20080721
  Receipt Date: 20080721
  Transmission Date: 20090109
  Serious: Yes (Hospitalization)
  Sender: FDA-Public Use
  Company Number: None

PATIENT
  Sex: Male
  Weight: 22.8159 kg

DRUGS (2)
  1. BORTEZOMIB [Suspect]
     Indication: NEUROBLASTOMA
     Dosage: 1.04 MG D1, 4, 8, 11
  2. IRINOTECAN HCL [Suspect]
     Indication: NEUROBLASTOMA
     Dosage: 30 MG D 1-5 OF 21D CYCL

REACTIONS (4)
  - BACILLUS INFECTION [None]
  - BLOOD CULTURE POSITIVE [None]
  - CATHETER RELATED INFECTION [None]
  - PYREXIA [None]
